FAERS Safety Report 10093465 (Version 1)
Quarter: 2014Q2

REPORT INFORMATION
  Report Type: Spontaneous
  Country: US (occurrence: US)
  Receive Date: 20140421
  Receipt Date: 20140421
  Transmission Date: 20141212
  Serious: No
  Sender: FDA-Public Use
  Company Number: US-SA-2014SA018028

PATIENT
  Age: 92 Year
  Sex: Female

DRUGS (3)
  1. FEXOFENADINE HYDROCHLORIDE [Suspect]
     Indication: HYPERSENSITIVITY
     Route: 048
     Dates: start: 20140208, end: 20140210
  2. FEXOFENADINE HYDROCHLORIDE [Suspect]
     Indication: PRODUCTIVE COUGH
     Route: 048
     Dates: start: 20140208, end: 20140210
  3. FEXOFENADINE HYDROCHLORIDE [Suspect]
     Indication: EYE SWELLING
     Route: 048
     Dates: start: 20140208, end: 20140210

REACTIONS (5)
  - Visual impairment [Not Recovered/Not Resolved]
  - Haemorrhoids [Not Recovered/Not Resolved]
  - Hypertonic bladder [Unknown]
  - Headache [Not Recovered/Not Resolved]
  - Somnolence [Not Recovered/Not Resolved]
